FAERS Safety Report 7062779-2 (Version None)
Quarter: 2010Q4

REPORT INFORMATION
  Report Type: 
  Country: None (occurrence: None)
  Receive Date: 20101026
  Receipt Date: 20100115
  Transmission Date: 20110411
  Serious: No
  Sender: FDA-Public Use
  Company Number: US-PFIZER INC-2010008965

PATIENT
  Sex: Male
  Weight: 72.6 kg

DRUGS (2)
  1. LIPITOR [Suspect]
     Indication: BLOOD CHOLESTEROL INCREASED
     Dosage: 10MG, EVERY OTHER DAY
     Route: 048
     Dates: start: 20091201, end: 20100107
  2. ATENOLOL [Concomitant]
     Dosage: 25 MG, UNK

REACTIONS (2)
  - ABDOMINAL DISCOMFORT [None]
  - DIZZINESS [None]
